FAERS Safety Report 8481212-7 (Version None)
Quarter: 2012Q2

REPORT INFORMATION
  Report Type: 
  Country: None (occurrence: None)
  Receive Date: 20120625
  Receipt Date: 20120612
  Transmission Date: 20120825
  Serious: Yes (Other)
  Sender: FDA-Public Use
  Company Number: FK201201709

PATIENT
  Age: 8 Year
  Sex: Male

DRUGS (3)
  1. CYTARABINE [Suspect]
     Indication: ACUTE MYELOID LEUKAEMIA
     Dosage: 1000 MG/M2, EVERY 12 H ON D 1-3
  2. MITOXANTRONE [Concomitant]
  3. ETOPOSIDE [Concomitant]

REACTIONS (4)
  - CORNEAL EPITHELIAL MICROCYSTS [None]
  - PHOTOPHOBIA [None]
  - CORNEAL DEGENERATION [None]
  - PUNCTATE KERATITIS [None]
